FAERS Safety Report 6398946-0 (Version None)
Quarter: 2009Q4

REPORT INFORMATION
  Report Type: 
  Country: None (occurrence: None)
  Receive Date: 20091013
  Receipt Date: 20091007
  Transmission Date: 20100525
  Serious: No
  Sender: FDA-Public Use
  Company Number: US-B.I. PHARMACEUTICALS,INC./RIDGEFIELD-2009-BP-11715BP

PATIENT
  Age: 58 Year
  Sex: Male

DRUGS (3)
  1. ZANTAC 150 [Suspect]
     Indication: HIATUS HERNIA
     Dosage: 150 MG
     Route: 048
     Dates: start: 20090801, end: 20090901
  2. ZANTAC 150 [Suspect]
     Dosage: 300 MG
     Route: 048
     Dates: start: 20090901
  3. MYLANTA [Concomitant]
     Indication: HIATUS HERNIA

REACTIONS (1)
  - HIATUS HERNIA [None]
